FAERS Safety Report 20371577 (Version 1)
Quarter: 2022Q1

REPORT INFORMATION
  Report Type: Spontaneous
  Country: US (occurrence: None)
  Receive Date: 20220124
  Receipt Date: 20220124
  Transmission Date: 20220423
  Serious: Yes (Hospitalization, Other)
  Sender: FDA-Public Use
  Company Number: US-Hikma Pharmaceuticals USA Inc.-US-H14001-22-00197

PATIENT
  Age: 16 Year
  Sex: Male
  Weight: 94 kg

DRUGS (4)
  1. METHOTREXATE [Suspect]
     Active Substance: METHOTREXATE
     Indication: Acute lymphocytic leukaemia
     Dosage: UNKNOWN
     Route: 042
  2. METHOTREXATE [Suspect]
     Active Substance: METHOTREXATE
     Dosage: UNKNOWN
     Route: 037
  3. RUXOLITINIB [Suspect]
     Active Substance: RUXOLITINIB
     Indication: Acute lymphocytic leukaemia
     Dosage: 100 MILLIGRAM, D1-10, D21-30, D41-50
     Route: 048
     Dates: start: 20201002
  4. VINCRISTINE [Suspect]
     Active Substance: VINCRISTINE
     Indication: Acute lymphocytic leukaemia
     Dosage: UNKNOWN
     Route: 042

REACTIONS (16)
  - Pneumonia [Recovered/Resolved]
  - Oxygen saturation decreased [Unknown]
  - Epistaxis [Unknown]
  - Mucosal haemorrhage [Unknown]
  - Immunosuppression [Unknown]
  - Pyrexia [Unknown]
  - Granulicatella infection [Recovered/Resolved]
  - Candida infection [Recovered/Resolved]
  - Bacterial infection [Recovered/Resolved]
  - Lactobacillus infection [Recovered/Resolved]
  - Streptococcus test positive [Recovered/Resolved]
  - Epstein-Barr virus test positive [Recovered/Resolved]
  - Herpes simplex [Recovered/Resolved]
  - Pyelonephritis [Unknown]
  - Aspergillus infection [Recovered/Resolved]
  - Dyspnoea [Unknown]

NARRATIVE: CASE EVENT DATE: 20201203
